FAERS Safety Report 22591031 (Version 1)
Quarter: 2023Q2

REPORT INFORMATION
  Report Type: Spontaneous
  Country: US (occurrence: US)
  Receive Date: 20230612
  Receipt Date: 20230612
  Transmission Date: 20230722
  Serious: No
  Sender: FDA-Public Use
  Company Number: US-PFIZER INC-PV202300102700

PATIENT
  Age: 58 Year
  Sex: Female

DRUGS (1)
  1. NYVEPRIA [Suspect]
     Active Substance: PEGFILGRASTIM-APGF
     Dosage: UNK
     Dates: start: 20230516

REACTIONS (3)
  - White blood cell count decreased [Unknown]
  - Neutrophil count increased [Unknown]
  - Psychiatric symptom [Unknown]
